FAERS Safety Report 4568134-9 (Version None)
Quarter: 2005Q1

REPORT INFORMATION
  Report Type: 
  Country: None (occurrence: None)
  Receive Date: 20050202
  Receipt Date: 20050124
  Transmission Date: 20050727
  Serious: Yes (Hospitalization)
  Sender: FDA-Public Use
  Company Number: US-BRISTOL-MYERS SQUIBB COMPANY-12836557

PATIENT
  Age: 38 Year
  Sex: Male

DRUGS (2)
  1. MONOPRIL [Suspect]
     Route: 048
  2. INTERFERON BETA [Suspect]
     Indication: MULTIPLE SCLEROSIS
     Route: 058
     Dates: start: 20040818

REACTIONS (8)
  - BLINDNESS [None]
  - DEAFNESS [None]
  - DEHYDRATION [None]
  - FEELING COLD [None]
  - FEELING HOT [None]
  - HYPOTENSION [None]
  - INJECTION SITE MASS [None]
  - NECK PAIN [None]
